FAERS Safety Report 25610552 (Version 2)
Quarter: 2025Q3

REPORT INFORMATION
  Report Type: Report from Study
  Country: CA (occurrence: CA)
  Receive Date: 20250728
  Receipt Date: 20250812
  Transmission Date: 20251021
  Serious: Yes (Other)
  Sender: TAKEDA
  Company Number: CA-TAKEDA-2025TUS064228

PATIENT
  Sex: Female

DRUGS (3)
  1. VEDOLIZUMAB [Suspect]
     Active Substance: VEDOLIZUMAB
     Indication: Colitis ulcerative
     Dates: start: 20220614, end: 20250624
  2. PREDNISONE [Concomitant]
     Active Substance: PREDNISONE
  3. Salofalk [Concomitant]

REACTIONS (7)
  - Haematochezia [Unknown]
  - Drug ineffective [Not Recovered/Not Resolved]
  - Depressed mood [Unknown]
  - Discomfort [Unknown]
  - Defaecation urgency [Unknown]
  - Thirst [Unknown]
  - Asthenia [Unknown]
